FAERS Safety Report 9859209 (Version 2)
Quarter: 2014Q1

REPORT INFORMATION
  Report Type: Report from Study
  Country: US (occurrence: US)
  Receive Date: 20140131
  Receipt Date: 20140303
  Transmission Date: 20141002
  Serious: Yes (Life-Threatening, Hospitalization)
  Sender: FDA-Public Use
  Company Number: US-BRISTOL-MYERS SQUIBB COMPANY-20137311

PATIENT
  Age: 67 Year
  Sex: Female
  Weight: 66.3 kg

DRUGS (9)
  1. BELATACEPT [Suspect]
     Indication: RENAL TRANSPLANT
     Dosage: 20DEC2013?17JAN14
     Route: 042
     Dates: start: 20131023
  2. CAMPATH [Suspect]
     Indication: RENAL TRANSPLANT
  3. MYCOPHENOLATE MOFETIL [Suspect]
     Indication: RENAL TRANSPLANT
  4. INSULIN ASPART [Concomitant]
  5. INSULIN GLARGINE [Concomitant]
     Dosage: BED TIME
  6. METOPROLOL [Concomitant]
  7. NYSTATIN [Concomitant]
  8. BACTRIM [Concomitant]
     Dosage: 1DF = 400-80MG
  9. VALGANCICLOVIR [Concomitant]

REACTIONS (4)
  - Mental status changes [Recovered/Resolved]
  - Fall [Unknown]
  - Subdural haematoma [Unknown]
  - Wound infection [Recovered/Resolved]
